FAERS Safety Report 20577552 (Version 2)
Quarter: 2022Q2

REPORT INFORMATION
  Report Type: Spontaneous
  Country: CN (occurrence: None)
  Receive Date: 20220310
  Receipt Date: 20220418
  Transmission Date: 20220721
  Serious: Yes (Other)
  Sender: FDA-Public Use
  Company Number: CN-ROCHE-3042355

PATIENT
  Age: 64 Year
  Sex: Female

DRUGS (21)
  1. MABTHERA [Suspect]
     Active Substance: RITUXIMAB
     Indication: Mantle cell lymphoma
     Dosage: RCHOP FOR 8 CYCLES?RITUXIMAB FOR 4 CYCLES
     Route: 065
  2. GAZYVA [Suspect]
     Active Substance: OBINUTUZUMAB
     Indication: Mantle cell lymphoma
     Dosage: FORM OF ADMIN. TEXT: INJECTION
     Route: 042
     Dates: start: 20220117
  3. GAZYVA [Suspect]
     Active Substance: OBINUTUZUMAB
     Dosage: FORM OF ADMIN. TEXT: INJECTION
     Route: 042
     Dates: start: 20220222
  4. GAZYVA [Suspect]
     Active Substance: OBINUTUZUMAB
     Route: 042
     Dates: start: 20220405
  5. VENETOCLAX [Suspect]
     Active Substance: VENETOCLAX
     Indication: Mantle cell lymphoma
     Dosage: DOSAGE TEXT:  ZANUBRUTINIB+VENETOCLAX
     Route: 048
     Dates: start: 202010
  6. VENETOCLAX [Suspect]
     Active Substance: VENETOCLAX
     Route: 048
     Dates: start: 202112
  7. ZANUBRUTINIB [Suspect]
     Active Substance: ZANUBRUTINIB
     Indication: Mantle cell lymphoma
     Route: 048
     Dates: start: 202010
  8. ZANUBRUTINIB [Suspect]
     Active Substance: ZANUBRUTINIB
     Route: 048
     Dates: start: 202112
  9. PALBOCICLIB [Suspect]
     Active Substance: PALBOCICLIB
     Indication: Mantle cell lymphoma
     Route: 048
     Dates: start: 202112
  10. CYCLOPHOSPHAMIDE [Concomitant]
     Active Substance: CYCLOPHOSPHAMIDE
     Indication: Mantle cell lymphoma
     Dosage: DOSAGE TEXT: RCHOP FOR 8 CYCLES
  11. DOXORUBICIN [Concomitant]
     Active Substance: DOXORUBICIN
     Indication: Mantle cell lymphoma
     Dosage: DOSAGE TEXT: RCHOP FOR 8 CYCLES
  12. VINCRISTINE [Concomitant]
     Active Substance: VINCRISTINE
     Indication: Mantle cell lymphoma
     Dosage: DOSAGE TEXT: RCHOP FOR 8 CYCLES
  13. PREDNISONE [Concomitant]
     Active Substance: PREDNISONE
     Indication: Mantle cell lymphoma
     Dosage: DOSAGE TEXT: RCHOP FOR 8 CYCLES
  14. ORELABRUTINIB [Concomitant]
     Active Substance: ORELABRUTINIB
     Indication: Mantle cell lymphoma
  15. LENALIDOMIDE [Concomitant]
     Active Substance: LENALIDOMIDE
     Indication: Mantle cell lymphoma
     Route: 048
     Dates: start: 202010
  16. SELINEXOR [Concomitant]
     Active Substance: SELINEXOR
     Indication: Mantle cell lymphoma
     Route: 048
     Dates: start: 20220117
  17. SELINEXOR [Concomitant]
     Active Substance: SELINEXOR
     Dates: start: 20220222
  18. BENDAMUSTINE [Concomitant]
     Active Substance: BENDAMUSTINE
     Indication: Mantle cell lymphoma
     Dosage: DOSAGE TEXT: 150 MG DAY1, 125 MG DAY2, 28-DAY CYCLE.
     Dates: start: 20220222
  19. VALSARTAN [Concomitant]
     Active Substance: VALSARTAN
     Indication: Hypertension
     Route: 048
  20. LEVAMLODIPINE BESYLATE [Concomitant]
     Active Substance: LEVAMLODIPINE BESYLATE
     Indication: Hypertension
     Route: 048
  21. LANTUS [Concomitant]
     Active Substance: INSULIN GLARGINE
     Indication: Diabetes mellitus

REACTIONS (5)
  - Myelosuppression [Unknown]
  - Peripheral swelling [Recovering/Resolving]
  - Platelet count decreased [Unknown]
  - Off label use [Unknown]
  - Rash [Recovering/Resolving]
